FAERS Safety Report 13647242 (Version 1)
Quarter: 2017Q2

REPORT INFORMATION
  Report Type: Report from Study
  Country: BR (occurrence: BR)
  Receive Date: 20170613
  Receipt Date: 20170613
  Transmission Date: 20170830
  Serious: Yes (Other)
  Sender: FDA-Public Use
  Company Number: ALCN2017BR003818

PATIENT
  Age: 75 Year
  Sex: Female
  Weight: 70.2 kg

DRUGS (4)
  1. LACRIMA PLUS (ALC) [Suspect]
     Active Substance: DEXTRAN 70\HYPROMELLOSES
     Indication: EYE PRURITUS
     Dosage: 3, 4 AND 5 TIMES A DAY
     Route: 047
  2. FLUTINOL [Concomitant]
     Indication: PRODUCT USED FOR UNKNOWN INDICATION
     Dosage: UNK UNK, TID
     Route: 047
  3. LACRIMA PLUS (ALC) [Suspect]
     Active Substance: DEXTRAN 70\HYPROMELLOSES
     Indication: EYE IRRITATION
  4. DRUSOLOL [Concomitant]
     Active Substance: DORZOLAMIDE HYDROCHLORIDE\TIMOLOL MALEATE
     Indication: PRODUCT USED FOR UNKNOWN INDICATION
     Dosage: UNK UNK, TID
     Route: 047

REACTIONS (14)
  - Lacrimation increased [Unknown]
  - Photophobia [Unknown]
  - Eye irritation [Unknown]
  - Intraocular pressure test abnormal [Unknown]
  - Cataract [Unknown]
  - Vision blurred [Unknown]
  - Head discomfort [Unknown]
  - Eye pain [Unknown]
  - Eye disorder [Unknown]
  - Arthropathy [Unknown]
  - Eye swelling [Unknown]
  - Malaise [Unknown]
  - Visual impairment [Unknown]
  - Iris hyperpigmentation [Unknown]
